FAERS Safety Report 14483994 (Version 2)
Quarter: 2018Q2

REPORT INFORMATION
  Report Type: Report from Study
  Country: None (occurrence: US)
  Receive Date: 20180205
  Receipt Date: 20180423
  Transmission Date: 20180711
  Serious: Yes (Other)
  Sender: FDA-Public Use
  Company Number: US-ABBVIE-17K-163-2016211-00

PATIENT
  Sex: Male

DRUGS (1)
  1. HUMIRA [Suspect]
     Active Substance: ADALIMUMAB
     Indication: HIDRADENITIS
     Route: 058
     Dates: start: 200311, end: 201801

REACTIONS (7)
  - Arthropathy [Unknown]
  - Pain [Unknown]
  - Sensitivity to weather change [Unknown]
  - Intervertebral disc protrusion [Recovered/Resolved]
  - Road traffic accident [Unknown]
  - Sciatica [Recovered/Resolved]
  - Road traffic accident [Recovering/Resolving]

NARRATIVE: CASE EVENT DATE: 2016
